FAERS Safety Report 7342923-X (Version None)
Quarter: 2011Q1

REPORT INFORMATION
  Report Type: 
  Country: None (occurrence: None)
  Receive Date: 20110310
  Receipt Date: 20110302
  Transmission Date: 20110831
  Serious: Yes (Other)
  Sender: FDA-Public Use
  Company Number: CH-ASTRAZENECA-2010SE38742

PATIENT
  Age: 34 Year
  Sex: Female

DRUGS (3)
  1. ZANIDIP [Suspect]
     Indication: RENAL HYPERTENSION
     Route: 065
     Dates: start: 20100401
  2. ALDACTONE [Suspect]
     Indication: RENAL HYPERTENSION
     Dates: start: 20100701
  3. BELOC ZOK [Suspect]
     Indication: RENAL HYPERTENSION
     Route: 048
     Dates: start: 20100101

REACTIONS (1)
  - DRUG EXPOSURE DURING PREGNANCY [None]
